FAERS Safety Report 8509879 (Version 2)
Quarter: 2015Q2

REPORT INFORMATION
  Report Type: Spontaneous
  Country: ES (occurrence: ES)
  Receive Date: 20120413
  Receipt Date: 20150427
  Transmission Date: 20150821
  Serious: Yes (Death, Other)
  Sender: FDA-Public Use
  Company Number: ES-JNJFOC-20120402398

PATIENT

DRUGS (13)
  1. PEGFILGRASTIM [Concomitant]
     Active Substance: PEGFILGRASTIM
     Indication: PROPHYLAXIS
  2. SULFAMETHOXAZOL/TRIMETHOPRIM [Concomitant]
     Active Substance: SULFAMETHOXAZOLE\TRIMETHOPRIM
     Dosage: 800/160 MG FOR 3 DAYS PER WEEK
     Route: 065
  3. DOXORUBICINE [Suspect]
     Active Substance: DOXORUBICIN
     Indication: B-CELL LYMPHOMA
     Route: 042
  4. FILGRASTIM [Concomitant]
     Active Substance: FILGRASTIM
  5. CYTARABINE. [Concomitant]
     Active Substance: CYTARABINE
     Indication: PROPHYLAXIS
     Dosage: 800/160 MG FOR 3 DAYS PER WEEK
     Route: 037
  6. RITUXIMAB [Suspect]
     Active Substance: RITUXIMAB
     Indication: B-CELL LYMPHOMA
     Route: 065
  7. VINCRISTINE [Suspect]
     Active Substance: VINCRISTINE
     Indication: B-CELL LYMPHOMA
     Route: 065
  8. HYDROCORTISONE. [Concomitant]
     Active Substance: HYDROCORTISONE
     Indication: PROPHYLAXIS
     Dosage: 800/160 MG FOR 3 DAYS PER WEEK
     Route: 065
  9. CYCLOPHOSPHAMIDE. [Suspect]
     Active Substance: CYCLOPHOSPHAMIDE
     Indication: B-CELL LYMPHOMA
     Route: 065
  10. RADIOTHERAPY [Suspect]
     Active Substance: RADIATION THERAPY
     Indication: B-CELL LYMPHOMA
     Route: 065
  11. PREDNISONE. [Suspect]
     Active Substance: PREDNISONE
     Indication: B-CELL LYMPHOMA
     Route: 065
  12. METHOTREXATE [Concomitant]
     Active Substance: METHOTREXATE
     Indication: PROPHYLAXIS
     Dosage: 800/160 MG FOR 3 DAYS PER WEEK
     Route: 065
  13. ETOPOSIDE. [Suspect]
     Active Substance: ETOPOSIDE
     Indication: B-CELL LYMPHOMA
     Route: 065

REACTIONS (13)
  - Death [Fatal]
  - B-cell lymphoma [Fatal]
  - Thrombocytopenia [Unknown]
  - Haemorrhage [Unknown]
  - Mucosal inflammation [Unknown]
  - Neurotoxicity [Unknown]
  - Sensory disturbance [Unknown]
  - Anaemia [Unknown]
  - Febrile neutropenia [Unknown]
  - Condition aggravated [Unknown]
  - Vomiting [Unknown]
  - Infection [Unknown]
  - Nausea [Unknown]
